FAERS Safety Report 8687247 (Version 3)
Quarter: 2013Q2

REPORT INFORMATION
  Report Type: Spontaneous
  Country: US (occurrence: US)
  Receive Date: 20120727
  Receipt Date: 20130405
  Transmission Date: 20140414
  Serious: Yes (Hospitalization, Other)
  Sender: FDA-Public Use
  Company Number: US-BAYER-2012-072909

PATIENT
  Age: 21 Year
  Sex: Female

DRUGS (7)
  1. BEYAZ [Suspect]
     Indication: CONTRACEPTION
     Dosage: UNK
     Dates: start: 201001, end: 20120402
  2. ADDERALL [Concomitant]
     Dosage: 20 MG, BID (IN THE MORNING)
  3. ADDERALL [Concomitant]
     Dosage: 10 MG, IN THE EVENING
  4. METFORMIN [Concomitant]
     Indication: POLYCYSTIC OVARIES
     Dosage: 750 MG, BID
  5. ZANTAC [Concomitant]
     Dosage: 150 MG, DAILY
  6. SINGULAIR [Concomitant]
     Dosage: 10 MG, DAILY
  7. BYSTOLIC [Concomitant]
     Dosage: 5 MG, BID

REACTIONS (3)
  - Deep vein thrombosis [Recovered/Resolved]
  - Cholelithiasis [None]
  - Deep vein thrombosis [None]
